FAERS Safety Report 7680832 (Version 4)
Quarter: 2016Q1

REPORT INFORMATION
  Report Type: Spontaneous
  Country: US (occurrence: US)
  Receive Date: 20101123
  Receipt Date: 20160202
  Transmission Date: 20160526
  Serious: Yes (Other)
  Sender: FDA-Public Use
  Company Number: US-BRISTOL-MYERS SQUIBB COMPANY-15394901

PATIENT
  Age: 35 Year
  Sex: Female

DRUGS (3)
  1. IMPLANON [Interacting]
     Active Substance: ETONOGESTREL
     Indication: CONTRACEPTION
     Dosage: UNK
     Route: 065
  2. LOPINAVIR [Interacting]
     Active Substance: LOPINAVIR
     Indication: ANTIRETROVIRAL THERAPY
     Route: 065
  3. EFAVIRENZ [Suspect]
     Active Substance: EFAVIRENZ
     Indication: ANTIRETROVIRAL THERAPY
     Dosage: UNK
     Route: 065

REACTIONS (3)
  - Drug interaction [Unknown]
  - Abortion induced [Unknown]
  - Pregnancy with implant contraceptive [Recovered/Resolved]
